FAERS Safety Report 6983967-7 (Version None)
Quarter: 2010Q3

REPORT INFORMATION
  Report Type: 
  Country: None (occurrence: None)
  Receive Date: 20100915
  Receipt Date: 20090423
  Transmission Date: 20110219
  Serious: No
  Sender: FDA-Public Use
  Company Number: US-WYE-H09113709

PATIENT
  Sex: Female

DRUGS (6)
  1. TORISEL [Suspect]
     Indication: RENAL CELL CARCINOMA
     Route: 042
     Dates: start: 20090310, end: 20090310
  2. TORISEL [Suspect]
     Route: 042
     Dates: start: 20090317, end: 20090317
  3. TORISEL [Suspect]
     Route: 042
     Dates: start: 20090407, end: 20090407
  4. TORISEL [Suspect]
     Dosage: MISSED DOSE DUE TO LOW PLATELET COUNT
     Route: 042
     Dates: start: 20090414, end: 20090414
  5. TORISEL [Suspect]
     Route: 042
     Dates: start: 20090421, end: 20090421
  6. TORISEL [Suspect]
     Route: 042
     Dates: start: 20090331, end: 20090331

REACTIONS (3)
  - INCORRECT DOSE ADMINISTERED [None]
  - PLATELET COUNT DECREASED [None]
  - SKIN HYPERPIGMENTATION [None]
